FAERS Safety Report 8981160 (Version 4)
Quarter: 2013Q3

REPORT INFORMATION
  Report Type: Spontaneous
  Country: FR (occurrence: FR)
  Receive Date: 20121221
  Receipt Date: 20130913
  Transmission Date: 20140515
  Serious: Yes (Other)
  Sender: FDA-Public Use
  Company Number: FR-GLAXOSMITHKLINE-B0854056A

PATIENT
  Age: 63 Year
  Sex: Female

DRUGS (1)
  1. ADARTREL [Suspect]
     Indication: RESTLESS LEGS SYNDROME
     Dosage: .25MG TWICE PER DAY
     Route: 048
     Dates: start: 200512, end: 201204

REACTIONS (6)
  - Diplopia [Recovered/Resolved]
  - Somnolence [Recovered/Resolved]
  - Binocular eye movement disorder [Recovered/Resolved]
  - Strabismus [Recovered/Resolved]
  - Heterophoria [Recovered/Resolved]
  - Inappropriate schedule of drug administration [Unknown]
